FAERS Safety Report 7116194-3 (Version None)
Quarter: 2010Q4

REPORT INFORMATION
  Report Type: 
  Country: None (occurrence: None)
  Receive Date: 20101122
  Receipt Date: 20101112
  Transmission Date: 20110411
  Serious: Yes (Hospitalization)
  Sender: FDA-Public Use
  Company Number: JP-NOVOPROD-318336

PATIENT
  Age: 50 Year
  Sex: Female
  Weight: 79 kg

DRUGS (6)
  1. VICTOZA [Suspect]
     Indication: TYPE 2 DIABETES MELLITUS
     Dosage: 0.3 MG, QD
     Route: 058
     Dates: start: 20100726
  2. VICTOZA [Suspect]
     Dosage: 0.6 MG, QD
     Route: 058
     Dates: start: 20100823, end: 20101104
  3. TERBINAFINE HCL [Suspect]
     Indication: RASH
     Dosage: 125 MG, QD
     Route: 048
     Dates: start: 20100923, end: 20101105
  4. NU-LOTAN [Concomitant]
     Dosage: 50 MG, QD
     Route: 048
     Dates: start: 20090304
  5. MELBIN                             /00082702/ [Concomitant]
     Dosage: 500 MG, QD
     Route: 048
     Dates: start: 20090304
  6. LIPITOR [Concomitant]
     Dosage: 10 MG, QD
     Route: 048
     Dates: start: 20100312

REACTIONS (1)
  - RASH [None]
